FAERS Safety Report 8175349-X (Version None)
Quarter: 2012Q1

REPORT INFORMATION
  Report Type: 
  Country: None (occurrence: None)
  Receive Date: 20120229
  Receipt Date: 20120222
  Transmission Date: 20120608
  Serious: Yes (Other)
  Sender: FDA-Public Use
  Company Number: US-PFIZER INC-2012008173

PATIENT
  Sex: Female

DRUGS (3)
  1. XALATAN [Suspect]
     Dosage: UNK
  2. LATANOPROST [Suspect]
     Dosage: UNK
  3. GENTEAL [Concomitant]
     Indication: DRY EYE

REACTIONS (3)
  - RASH [None]
  - HYPOACUSIS [None]
  - DERMATITIS [None]
